FAERS Safety Report 24815142 (Version 1)
Quarter: 2025Q1

REPORT INFORMATION
  Report Type: Spontaneous
  Country: GR (occurrence: None)
  Receive Date: 20250107
  Receipt Date: 20250107
  Transmission Date: 20250409
  Serious: Yes (Hospitalization, Disabling, Other)
  Sender: FDA-CTU
  Company Number: None

PATIENT
  Age: 36 Year
  Sex: Female
  Weight: 65 kg

DRUGS (3)
  1. ESCITALOPRAM [Suspect]
     Active Substance: ESCITALOPRAM OXALATE
     Indication: Social anxiety disorder
     Dosage: OTHER QUANTITY : 1 TABLET(S);?FREQUENCY : DAILY;?
     Route: 048
     Dates: start: 20140712, end: 20220203
  2. PANAX GINSENG WHOLE [Suspect]
     Active Substance: PANAX GINSENG WHOLE
  3. COVID-19 VACCINE NOS [Suspect]
     Active Substance: COVID-19 VACCINE

REACTIONS (23)
  - Migraine [None]
  - Apathy [None]
  - Withdrawal syndrome [None]
  - Amnesia [None]
  - Autonomic nervous system imbalance [None]
  - Visual impairment [None]
  - Dysphagia [None]
  - Sexual dysfunction [None]
  - Language disorder [None]
  - Injury [None]
  - Illness [None]
  - Nonspecific reaction [None]
  - Tinnitus [None]
  - Confusional state [None]
  - Illness [None]
  - Vertigo [None]
  - Oscillopsia [None]
  - Electroencephalogram abnormal [None]
  - Cognitive disorder [None]
  - Arteriosclerosis [None]
  - Lumbar puncture abnormal [None]
  - Mental disorder [None]
  - General physical health deterioration [None]

NARRATIVE: CASE EVENT DATE: 20180506
